FAERS Safety Report 17856205 (Version 1)
Quarter: 2020Q2

REPORT INFORMATION
  Report Type: Spontaneous
  Country: TR (occurrence: TR)
  Receive Date: 20200603
  Receipt Date: 20200603
  Transmission Date: 20200714
  Serious: No
  Sender: FDA-Public Use
  Company Number: TR-TOLMAR, INC.-19TR000139

PATIENT
  Age: 60 Year
  Sex: Male

DRUGS (2)
  1. ELIGARD [Suspect]
     Active Substance: LEUPROLIDE ACETATE
     Dosage: 22.5 MILLIGRAM, EVERY 3 MONTHS
     Route: 058
     Dates: start: 20190829
  2. ELIGARD [Suspect]
     Active Substance: LEUPROLIDE ACETATE
     Indication: PROSTATE CANCER METASTATIC
     Dosage: 22.5 MILLIGRAM, EVERY 3 MONTHS
     Route: 058

REACTIONS (2)
  - Intercepted product storage error [None]
  - Product use in unapproved indication [Unknown]

NARRATIVE: CASE EVENT DATE: 20190821
